FAERS Safety Report 9552061 (Version 1)
Quarter: 2013Q3

REPORT INFORMATION
  Report Type: Spontaneous
  Country: US (occurrence: None)
  Receive Date: 20130923
  Receipt Date: 20130923
  Transmission Date: 20140515
  Serious: No
  Sender: FDA-Public Use
  Company Number: None

PATIENT
  Age: 16 Year
  Sex: Male
  Weight: 107.73 kg

DRUGS (12)
  1. 5-FLUOROURACIL [Suspect]
  2. BEVACIZUMAB (RHUMAB VEGF) (704865) [Suspect]
  3. LEUCOVORIN CALCIUM [Suspect]
  4. OXALIPLATIN (ELOXATIN) [Suspect]
  5. ASPIRIN [Concomitant]
  6. ATIVAN [Concomitant]
  7. DULCOLAX [Concomitant]
  8. LAMISIL [Concomitant]
  9. NORCO [Concomitant]
  10. SANCUSO TRANSDERM PATCH [Concomitant]
  11. TOPOROL XL [Concomitant]
  12. DEXAMETHASONE [Concomitant]

REACTIONS (5)
  - Vomiting [None]
  - Diarrhoea [None]
  - Dizziness [None]
  - Dysgeusia [None]
  - Dysgeusia [None]
